FAERS Safety Report 7033970-6 (Version None)
Quarter: 2010Q4

REPORT INFORMATION
  Report Type: 
  Country: None (occurrence: None)
  Receive Date: 20101005
  Receipt Date: 20100924
  Transmission Date: 20110411
  Serious: Yes (Other)
  Sender: FDA-Public Use
  Company Number: 2010AP002073

PATIENT
  Age: 73 Year
  Sex: Male

DRUGS (5)
  1. AMIODARONE HCL [Suspect]
  2. LEVOFLOXACIN [Suspect]
     Dosage: IV
     Route: 042
  3. CARVEDILOL [Concomitant]
  4. PROPOFOL [Concomitant]
  5. CORTICOSTEROIDS [Concomitant]

REACTIONS (5)
  - DRUG TOXICITY [None]
  - DYSPNOEA [None]
  - MENTAL STATUS CHANGES [None]
  - TORSADE DE POINTES [None]
  - VENTRICULAR TACHYCARDIA [None]
